FAERS Safety Report 15474987 (Version 2)
Quarter: 2018Q4

REPORT INFORMATION
  Report Type: Spontaneous
  Country: CA (occurrence: CA)
  Receive Date: 20181008
  Receipt Date: 20181016
  Transmission Date: 20190205
  Serious: Yes (Other)
  Sender: FDA-Public Use
  Company Number: CA-SA-2018SA273383

PATIENT
  Age: 73 Year
  Sex: Female

DRUGS (1)
  1. GLIBENCLAMIDE [Suspect]
     Active Substance: GLYBURIDE

REACTIONS (2)
  - Depressed level of consciousness [Unknown]
  - Hypoglycaemia [Unknown]
